FAERS Safety Report 22886738 (Version 5)
Quarter: 2023Q4

REPORT INFORMATION
  Report Type: Spontaneous
  Country: FR (occurrence: FR)
  Receive Date: 20230831
  Receipt Date: 20231020
  Transmission Date: 20240109
  Serious: Yes (Hospitalization)
  Sender: FDA-Public Use
  Company Number: None

PATIENT
  Age: 72 Year
  Sex: Female
  Weight: 62 kg

DRUGS (16)
  1. BACTRIM [Suspect]
     Active Substance: SULFAMETHOXAZOLE\TRIMETHOPRIM
     Indication: Antiviral prophylaxis
     Dosage: 1 SULFAMETHOXAZOLE/TRIMETHOPRIM 400 MG/80 MG TABLET IN THE MORNING 1 DF, QD. ON 10/AUG/2023, SHE REC
     Route: 065
     Dates: start: 20230531, end: 20230810
  2. RITUXIMAB [Suspect]
     Active Substance: RITUXIMAB
     Indication: Acquired haemophilia
     Dosage: C4
     Route: 065
     Dates: start: 20230623, end: 20230623
  3. RITUXIMAB [Suspect]
     Active Substance: RITUXIMAB
     Dosage: C2
     Route: 065
     Dates: start: 20230607, end: 20230607
  4. RITUXIMAB [Suspect]
     Active Substance: RITUXIMAB
     Dosage: C1
     Route: 065
     Dates: start: 20230531, end: 20230531
  5. RITUXIMAB [Suspect]
     Active Substance: RITUXIMAB
     Dosage: C3
     Route: 065
     Dates: start: 20230615, end: 20230615
  6. PANTOPRAZOLE [Suspect]
     Active Substance: PANTOPRAZOLE
     Indication: Dyspepsia
     Dosage: 40MG IN THE EVENING. ON 10/AUG/2023, SHE RECEIVED MOST RECENT DOSE OF PANTOPRAZOLE.
     Route: 065
     Dates: start: 2017, end: 20230810
  7. VALACYCLOVIR HYDROCHLORIDE [Suspect]
     Active Substance: VALACYCLOVIR HYDROCHLORIDE
     Indication: Antiviral prophylaxis
     Dosage: 500 MG MORNING AND EVENING. ON 10/AUG/2023, SHE RECEIVED MOST RECENT DOSE OF VALACICLOVIR.
     Route: 065
     Dates: start: 20230624, end: 20230810
  8. BISOPROLOL [Concomitant]
     Active Substance: BISOPROLOL\BISOPROLOL FUMARATE
     Indication: Cardiomyopathy
     Dosage: 2.5MG IN THE MORNING
  9. POTASSIUM CHLORIDE [Concomitant]
     Active Substance: POTASSIUM CHLORIDE
     Indication: Hypokalaemia
     Dosage: 1 CAPSULE MORNING AND EVENING
     Route: 048
  10. PREDNISONE [Concomitant]
     Active Substance: PREDNISONE
     Indication: Acquired haemophilia
     Dosage: 60MG IN THE MORNING
  11. ACETAMINOPHEN [Concomitant]
     Active Substance: ACETAMINOPHEN
     Indication: Pain
     Dosage: 500MG EVERY 6 HOURS
  12. GABAPENTIN [Concomitant]
     Active Substance: GABAPENTIN
     Indication: Post herpetic neuralgia
     Dosage: 200MG MORNING, NOON AND EVENING
  13. ACETAMINOPHEN\CODEINE PHOSPHATE [Concomitant]
     Active Substance: ACETAMINOPHEN\CODEINE PHOSPHATE
     Indication: Pain
     Dosage: 1 TABLET EVERY 8 HOURS IF NEEDED
  14. ACETAMINOPHEN\CODEINE PHOSPHATE [Concomitant]
     Active Substance: ACETAMINOPHEN\CODEINE PHOSPHATE
     Dosage: 1 DF, PRN; EVERY 8 HOURS
  15. ACETAMINOPHEN\CODEINE PHOSPHATE [Concomitant]
     Active Substance: ACETAMINOPHEN\CODEINE PHOSPHATE
     Dosage: 1 DF, PRN; EVERY 8 HOURS
  16. ATORVASTATIN [Concomitant]
     Active Substance: ATORVASTATIN
     Indication: Cardiomyopathy
     Dosage: 10MG IN THE EVENING

REACTIONS (2)
  - Thrombocytopenia [Recovering/Resolving]
  - Agranulocytosis [Recovered/Resolved]

NARRATIVE: CASE EVENT DATE: 20230808
